FAERS Safety Report 23046206 (Version 8)
Quarter: 2023Q4

REPORT INFORMATION
  Report Type: Spontaneous
  Country: JP (occurrence: JP)
  Receive Date: 20231009
  Receipt Date: 20231211
  Transmission Date: 20240109
  Serious: Yes (Other)
  Sender: FDA-Public Use
  Company Number: JP-PFIZER INC-PV202300162777

PATIENT
  Age: 9 Year
  Sex: Male
  Weight: 31.3 kg

DRUGS (2)
  1. NGENLA [Suspect]
     Active Substance: SOMATROGON-GHLA
     Indication: Dwarfism
     Dosage: 20 MG
     Route: 058
     Dates: start: 20230924
  2. NGENLA [Suspect]
     Active Substance: SOMATROGON-GHLA
     Indication: Growth hormone deficiency

REACTIONS (5)
  - Injection site pain [Recovered/Resolved]
  - Injection site bruising [Unknown]
  - Myalgia [Unknown]
  - Gait disturbance [Unknown]
  - Arthralgia [Unknown]

NARRATIVE: CASE EVENT DATE: 20230924
